FAERS Safety Report 16867394 (Version 1)
Quarter: 2019Q3

REPORT INFORMATION
  Report Type: Spontaneous
  Country: DE (occurrence: DE)
  Receive Date: 20190930
  Receipt Date: 20190930
  Transmission Date: 20191005
  Serious: Yes (Other)
  Sender: FDA-Public Use
  Company Number: DE-MYLANLABS-2019M1089305

PATIENT
  Age: 67 Year

DRUGS (20)
  1. RITUXIMAB. [Suspect]
     Active Substance: RITUXIMAB
     Dosage: 2 CYCLES TOGETHER WITH BENDAMUSTINE, 6 MONTHS
     Route: 065
     Dates: start: 201811, end: 201812
  2. VINCRISTINE [Suspect]
     Active Substance: VINCRISTINE
     Indication: DIFFUSE LARGE B-CELL LYMPHOMA
     Dosage: 6 CYCLE WITH RITUXIMAB, 4 MONTHS
     Route: 065
     Dates: start: 201710, end: 201802
  3. METHOTREXATE. [Suspect]
     Active Substance: METHOTREXATE
     Indication: DIFFUSE LARGE B-CELL LYMPHOMA
     Dosage: 4000 MILLIGRAM/SQ. METER
     Route: 065
     Dates: start: 201901
  4. TOCILIZUMAB. [Suspect]
     Active Substance: TOCILIZUMAB
     Indication: DIFFUSE LARGE B-CELL LYMPHOMA
     Dosage: UNK
     Route: 065
     Dates: start: 20180812
  5. CYTARABINE. [Suspect]
     Active Substance: CYTARABINE
     Indication: DIFFUSE LARGE B-CELL LYMPHOMA
     Dosage: 2 CYCLES TOGETHER WITH RITUXIMAB, 1 MONTHS
     Route: 065
     Dates: start: 201804, end: 201805
  6. PREDNISOLONE. [Suspect]
     Active Substance: PREDNISOLONE
     Indication: DIFFUSE LARGE B-CELL LYMPHOMA
     Dosage: 6 CYCLE WITH RITUXIMAB, 4 MONTHS
     Route: 065
     Dates: start: 201710, end: 201802
  7. CISPLATIN. [Suspect]
     Active Substance: CISPLATIN
     Indication: DIFFUSE LARGE B-CELL LYMPHOMA
     Dosage: 2 CYCLES TOGETHER WITH RITUXIMAB, MONTHLY
     Route: 065
     Dates: start: 201804, end: 201805
  8. FLUDARABINE [Suspect]
     Active Substance: FLUDARABINE PHOSPHATE
     Indication: DIFFUSE LARGE B-CELL LYMPHOMA
     Dosage: TOGETHER WITH CYCLOPHOSPHAMIDE IN ZUMA 1 TRIAL
     Route: 065
     Dates: start: 20180803
  9. IBRUTINIB [Concomitant]
     Active Substance: IBRUTINIB
     Indication: DIFFUSE LARGE B-CELL LYMPHOMA
     Dosage: 560 MILLIGRAM
     Route: 065
     Dates: start: 20190212
  10. BENDAMUSTINE HYDROCHLORIDE. [Suspect]
     Active Substance: BENDAMUSTINE HYDROCHLORIDE
     Indication: DIFFUSE LARGE B-CELL LYMPHOMA
     Dosage: 2 CYCLES TOGETHER WITH RITUXIMAB, MONTHLY
     Route: 065
     Dates: start: 201811, end: 201812
  11. CYCLOPHOSPHAMIDE. [Suspect]
     Active Substance: CYCLOPHOSPHAMIDE
     Indication: DIFFUSE LARGE B-CELL LYMPHOMA
     Dosage: 6 CYCLES TOGETHER WITH RITUXIMAB, 4 MONTHS
     Route: 065
     Dates: start: 201710, end: 201802
  12. CYCLOPHOSPHAMIDE. [Suspect]
     Active Substance: CYCLOPHOSPHAMIDE
     Dosage: TOGETHER WITH FLUDARABIN IN ZUMA 1 TRAIL, 4 MONTHS
     Route: 065
     Dates: start: 20180803
  13. DEXAMETHASONE. [Suspect]
     Active Substance: DEXAMETHASONE
     Indication: DIFFUSE LARGE B-CELL LYMPHOMA
     Dosage: 2 CYCYES TOGETHER WITH RITUXIMAB, MONTHLY
     Route: 065
     Dates: start: 201804, end: 201805
  14. DEXAMETHASONE. [Suspect]
     Active Substance: DEXAMETHASONE
     Dosage: 4 MILLIGRAM, MONTHLY, IN TOTAL
     Route: 065
     Dates: start: 201901
  15. RITUXIMAB. [Suspect]
     Active Substance: RITUXIMAB
     Indication: PRODUCT USED FOR UNKNOWN INDICATION
     Dosage: 6 CYCLES TOGETHER WITH CHOEP, 6 MONTHS
     Route: 065
     Dates: start: 201710, end: 201802
  16. RITUXIMAB. [Suspect]
     Active Substance: RITUXIMAB
     Dosage: TOGETHER WITH DHAP, 6 MONTHS
     Route: 065
     Dates: start: 201804, end: 201805
  17. THIOTEPA. [Suspect]
     Active Substance: THIOTEPA
     Indication: DIFFUSE LARGE B-CELL LYMPHOMA
     Dosage: 40 MILLIGRAM/SQ. METER
     Route: 065
     Dates: start: 201901
  18. IFOSFAMIDE. [Suspect]
     Active Substance: IFOSFAMIDE
     Indication: DIFFUSE LARGE B-CELL LYMPHOMA
     Dosage: 2000 MILLIGRAM/SQ. METER
     Route: 065
     Dates: start: 201901
  19. DOXORUBICIN [Suspect]
     Active Substance: DOXORUBICIN
     Indication: DIFFUSE LARGE B-CELL LYMPHOMA
     Dosage: 6 CYCLES TOGETHER WITH RITUXIMAB
     Route: 065
     Dates: start: 201711, end: 201802
  20. RITUXIMAB. [Suspect]
     Active Substance: RITUXIMAB
     Dosage: 375 MILLIGRAM/SQ. METER, 6 MONTHS
     Route: 065
     Dates: start: 201901

REACTIONS (3)
  - Hypotension [Unknown]
  - Cytokine release syndrome [Unknown]
  - Acute kidney injury [Unknown]

NARRATIVE: CASE EVENT DATE: 201808
